FAERS Safety Report 12942798 (Version 1)
Quarter: 2016Q4

REPORT INFORMATION
  Report Type: Spontaneous
  Country: US (occurrence: US)
  Receive Date: 20161114
  Receipt Date: 20161114
  Transmission Date: 20170207
  Serious: No
  Sender: FDA-Public Use
  Company Number: US-CELGENEUS-USA-2016112281

PATIENT
  Age: 44 Year
  Sex: Female

DRUGS (5)
  1. OTEZLA [Suspect]
     Active Substance: APREMILAST
     Indication: PSORIASIS
     Dosage: TITRATION STARTER PACK?10,20,30MG
     Route: 048
     Dates: start: 20161103
  2. OTEZLA [Suspect]
     Active Substance: APREMILAST
     Indication: PSORIATIC ARTHROPATHY
  3. SYNTHROID [Concomitant]
     Active Substance: LEVOTHYROXINE SODIUM
     Indication: EUTHYROID SICK SYNDROME
     Route: 065
  4. MAXZIDE [Concomitant]
     Active Substance: HYDROCHLOROTHIAZIDE\TRIAMTERENE
     Indication: HYPERTENSION
     Route: 065
  5. OMEPRAZOLE. [Concomitant]
     Active Substance: OMEPRAZOLE
     Indication: DYSPEPSIA
     Route: 065

REACTIONS (7)
  - Arthralgia [Unknown]
  - Back pain [Unknown]
  - Influenza like illness [Unknown]
  - Constipation [Unknown]
  - Diarrhoea [Unknown]
  - Anxiety [Unknown]
  - Drug administration error [Unknown]

NARRATIVE: CASE EVENT DATE: 20161104
